FAERS Safety Report 16711030 (Version 1)
Quarter: 2019Q3

REPORT INFORMATION
  Report Type: Spontaneous
  Country: DE (occurrence: DE)
  Receive Date: 20190816
  Receipt Date: 20190816
  Transmission Date: 20191004
  Serious: Yes (Hospitalization)
  Sender: FDA-Public Use
  Company Number: DE-TEVA-2019-DE-1092040

PATIENT
  Age: 81 Year
  Sex: Male

DRUGS (1)
  1. METOPROLOL-RATIOPHARM 100 MG TABLETTEN [Suspect]
     Active Substance: METOPROLOL
     Dosage: 200 MILLIGRAM DAILY; INTAKE ONE EACH IN THE MORNING AND IN THE EVENING
     Route: 048
     Dates: start: 20190712, end: 20190713

REACTIONS (2)
  - Chest pain [Recovering/Resolving]
  - Hypertensive crisis [Recovering/Resolving]

NARRATIVE: CASE EVENT DATE: 20190713
